FAERS Safety Report 23672001 (Version 1)
Quarter: 2024Q1

REPORT INFORMATION
  Report Type: Spontaneous
  Country: US (occurrence: US)
  Receive Date: 20240326
  Receipt Date: 20240326
  Transmission Date: 20240410
  Serious: No
  Sender: FDA-Public Use
  Company Number: US-ALCON LABORATORIES-ALC2023US003648

PATIENT
  Age: 70 Year
  Sex: Female

DRUGS (1)
  1. PATADAY ONCE DAILY RELIEF [Suspect]
     Active Substance: OLOPATADINE HYDROCHLORIDE
     Indication: Erythema of eyelid
     Dosage: 1 DROP IN LEFT EYE ONCE A DAY FOR A WEEK
     Route: 047

REACTIONS (2)
  - Drug ineffective [Unknown]
  - Off label use [Unknown]
